FAERS Safety Report 8543929-5 (Version None)
Quarter: 2012Q3

REPORT INFORMATION
  Report Type: 
  Country: None (occurrence: None)
  Receive Date: 20120727
  Receipt Date: 20120723
  Transmission Date: 20120928
  Serious: Yes (Other)
  Sender: FDA-Public Use
  Company Number: BR-PFIZER INC-2012164927

PATIENT
  Age: 28 Year
  Sex: Female

DRUGS (13)
  1. INTERFERON BETA [Suspect]
     Indication: PAIN
     Dosage: UNKNOWN, 3/WEEK
     Route: 065
  2. AMITRIPTYLINE [Concomitant]
     Indication: PAIN
     Dosage: UNK
  3. TIZANIDINE HYDROCHLORIDE [Concomitant]
     Indication: MUSCLE SPASMS
     Dosage: UNK
     Dates: start: 20120501
  4. SEROQUEL [Concomitant]
     Indication: PAIN
     Dosage: UNK
  5. CYMBALTA [Suspect]
     Indication: PAIN
     Dosage: 1 DF, 1X/DAY
     Route: 065
     Dates: start: 20110101
  6. TOPAMAX [Concomitant]
     Indication: PAIN
     Dosage: ONE CAPSULE, THREE TIMES A DAY
     Dates: start: 20090101
  7. KETOCONAZOLE [Concomitant]
     Indication: PAIN
     Dosage: UNK
  8. TRAMADOL HYDROCHLORIDE [Suspect]
     Dosage: UNK, AS NEEDED
     Route: 048
     Dates: start: 20100801
  9. LYRICA [Suspect]
     Dosage: 75 MG, 3X/DAY
     Route: 048
     Dates: start: 20110101
  10. TRAMADOL [Concomitant]
     Indication: PAIN
     Dosage: UNK
  11. DIPYRONE TAB [Concomitant]
     Indication: PAIN
     Dosage: UNK
  12. TRAMADOL HYDROCHLORIDE [Suspect]
     Dosage: 150 MG, 3X/DAY
     Route: 048
     Dates: end: 20120501
  13. LYRICA [Suspect]
     Indication: MULTIPLE SCLEROSIS
     Dosage: 450 MG, 1X/DAY
     Route: 048

REACTIONS (14)
  - SOMNOLENCE [None]
  - DAYDREAMING [None]
  - SOCIAL AVOIDANT BEHAVIOUR [None]
  - ARTHROPATHY [None]
  - DRUG DEPENDENCE [None]
  - DRUG INEFFECTIVE [None]
  - GENERAL PHYSICAL CONDITION ABNORMAL [None]
  - PAIN [None]
  - SLEEP DISORDER [None]
  - INFLUENZA [None]
  - GAIT DISTURBANCE [None]
  - SPINAL DISORDER [None]
  - MUSCLE SPASMS [None]
  - FATIGUE [None]
